FAERS Safety Report 15782834 (Version 1)
Quarter: 2019Q1

REPORT INFORMATION
  Report Type: Spontaneous
  Country: NL (occurrence: NL)
  Receive Date: 20190102
  Receipt Date: 20190102
  Transmission Date: 20190417
  Serious: Yes (Other)
  Sender: FDA-Public Use
  Company Number: NL-JNJFOC-20181235808

PATIENT
  Sex: Female

DRUGS (3)
  1. DOXORUBICIN HYDROCHLORIDE. [Suspect]
     Active Substance: DOXORUBICIN HYDROCHLORIDE
     Indication: BREAST CANCER
     Route: 042
  2. CYCLOPHOSPHAMIDE. [Suspect]
     Active Substance: CYCLOPHOSPHAMIDE
     Indication: BREAST CANCER
     Route: 042
  3. DOCETAXEL. [Suspect]
     Active Substance: DOCETAXEL
     Indication: BREAST CANCER
     Route: 042

REACTIONS (16)
  - Thrombocytopenia [Unknown]
  - Fatigue [Unknown]
  - Vomiting [Unknown]
  - Febrile neutropenia [Unknown]
  - Neutropenia [Unknown]
  - Constipation [Unknown]
  - Pneumonia [Unknown]
  - Leukopenia [Unknown]
  - Nausea [Unknown]
  - Mucosal inflammation [Unknown]
  - Neuropathy peripheral [Unknown]
  - Stomatitis [Unknown]
  - Anaemia [Unknown]
  - Neutropenic colitis [Unknown]
  - Eye disorder [Unknown]
  - Diarrhoea [Unknown]
